FAERS Safety Report 17564762 (Version 1)
Quarter: 2020Q1

REPORT INFORMATION
  Report Type: Spontaneous
  Country: CA (occurrence: CA)
  Receive Date: 20200320
  Receipt Date: 20200320
  Transmission Date: 20200409
  Serious: Yes (Disabling)
  Sender: FDA-Public Use
  Company Number: CA-AUROBINDO-AUR-APL-2020-014248

PATIENT
  Age: 46 Year
  Sex: Female
  Weight: 79.8 kg

DRUGS (1)
  1. IRBESARTAN TABLETS [Suspect]
     Active Substance: IRBESARTAN
     Indication: BLOOD PRESSURE MEASUREMENT
     Dosage: 150 MILLIGRAM, EVERY 2 DAYS
     Route: 065

REACTIONS (3)
  - Product substitution issue [Unknown]
  - Hypertension [Unknown]
  - Drug ineffective [Unknown]
